FAERS Safety Report 7854758-X (Version None)
Quarter: 2011Q3

REPORT INFORMATION
  Report Type: 
  Country: None (occurrence: None)
  Receive Date: 20110916
  Receipt Date: 20101202
  Transmission Date: 20111222
  Serious: Yes (Hospitalization)
  Sender: FDA-Public Use
  Company Number: 2010-01131

PATIENT
  Age: 67 Year
  Sex: Female
  Weight: 62.5964 kg

DRUGS (3)
  1. ZYRTEC [Concomitant]
  2. MELOXICAM [Suspect]
     Indication: OSTEOARTHRITIS
     Dosage: 15 MG (1 IN 1 D),PER ORAL ; 15 MG (1 IN 1 D),PER ORAL
     Route: 048
     Dates: start: 20100601
  3. MELOXICAM [Suspect]
     Indication: OSTEOARTHRITIS
     Dosage: 15 MG (1 IN 1 D),PER ORAL ; 15 MG (1 IN 1 D),PER ORAL
     Route: 048
     Dates: start: 20100801

REACTIONS (1)
  - THROMBOSIS [None]
